FAERS Safety Report 19395872 (Version 1)
Quarter: 2021Q2

REPORT INFORMATION
  Report Type: Spontaneous
  Country: NL (occurrence: NL)
  Receive Date: 20210609
  Receipt Date: 20210609
  Transmission Date: 20210717
  Serious: Yes (Death, Other)
  Sender: FDA-Public Use
  Company Number: NL-009507513-2106NLD001391

PATIENT
  Age: 4 Year
  Sex: Male

DRUGS (1)
  1. CASPOFUNGIN ACETATE. [Suspect]
     Active Substance: CASPOFUNGIN ACETATE
     Indication: CANDIDA INFECTION
     Dosage: UNKNOWN
     Route: 065

REACTIONS (1)
  - Drug ineffective [Fatal]
